FAERS Safety Report 9729258 (Version 1)
Quarter: 2013Q4

REPORT INFORMATION
  Report Type: Other
  Country: RO (occurrence: RO)
  Receive Date: 20131204
  Receipt Date: 20131204
  Transmission Date: 20140711
  Serious: Yes (Hospitalization)
  Sender: FDA-Public Use
  Company Number: RO-BRISTOL-MYERS SQUIBB COMPANY-19869775

PATIENT
  Age: 55 Year
  Sex: Female

DRUGS (6)
  1. METFORMIN HCL [Suspect]
  2. INDAPAMIDE [Suspect]
     Indication: BLOOD PRESSURE MANAGEMENT
     Dosage: TABS
  3. ENALAPRIL [Concomitant]
  4. ZOLPIDEM [Concomitant]
  5. MIRTAZAPINE [Concomitant]
  6. QUETIAPINE [Concomitant]

REACTIONS (1)
  - Hyponatraemic encephalopathy [Recovered/Resolved]
